FAERS Safety Report 13059031 (Version 1)
Quarter: 2016Q4

REPORT INFORMATION
  Report Type: Spontaneous
  Country: SI (occurrence: SI)
  Receive Date: 20161223
  Receipt Date: 20161223
  Transmission Date: 20170207
  Serious: Yes (Life-Threatening, Hospitalization, Other)
  Sender: FDA-Public Use
  Company Number: SI-GILEAD-2016-0241067

PATIENT
  Age: 55 Year
  Sex: Male

DRUGS (1)
  1. ZYDELIG [Suspect]
     Active Substance: IDELALISIB
     Indication: CHRONIC LYMPHOCYTIC LEUKAEMIA
     Dosage: 150 MG, UNK
     Route: 048
     Dates: start: 20161011, end: 20161014

REACTIONS (4)
  - Thrombocytopenia [Unknown]
  - Chronic lymphocytic leukaemia [Unknown]
  - Lymphoma transformation [Unknown]
  - Sepsis [Unknown]

NARRATIVE: CASE EVENT DATE: 20161016
